FAERS Safety Report 8523211-2 (Version None)
Quarter: 2012Q3

REPORT INFORMATION
  Report Type: 
  Country: None (occurrence: None)
  Receive Date: 20120713
  Receipt Date: 20120713
  Transmission Date: 20120928
  Serious: No
  Sender: FDA-Public Use
  Company Number: None

PATIENT
  Sex: Male
  Weight: 77.1115 kg

DRUGS (1)
  1. FINASTERIDE [Suspect]
     Indication: ALOPECIA
     Dosage: 1 MG DAILY PO
     Route: 048
     Dates: start: 20090102, end: 20120331

REACTIONS (3)
  - SEXUAL DYSFUNCTION [None]
  - ORGASM ABNORMAL [None]
  - LOSS OF LIBIDO [None]
